FAERS Safety Report 21110633 (Version 1)
Quarter: 2022Q3

REPORT INFORMATION
  Report Type: Spontaneous
  Country: US (occurrence: None)
  Receive Date: 20220721
  Receipt Date: 20220721
  Transmission Date: 20221027
  Serious: No
  Sender: FDA-Public Use
  Company Number: None

PATIENT
  Age: 83 Year
  Sex: Female
  Weight: 84.14 kg

DRUGS (18)
  1. IBRANCE [Suspect]
     Active Substance: PALBOCICLIB
     Indication: Breast cancer female
     Dosage: OTHER FREQUENCY : 21D ON7D OFF;?
     Route: 048
     Dates: start: 202207
  2. ACITRETIN [Concomitant]
     Active Substance: ACITRETIN
  3. ANASTROZOLE [Concomitant]
     Active Substance: ANASTROZOLE
  4. BIOTIN [Concomitant]
     Active Substance: BIOTIN
  5. CALTRATE [Concomitant]
     Active Substance: CALCIUM CARBONATE
  6. CIPROFLOXACIN [Suspect]
     Active Substance: CIPROFLOXACIN
  7. FLONASE [Concomitant]
     Active Substance: FLUTICASONE PROPIONATE
  8. GENTAMICIN [Concomitant]
     Active Substance: GENTAMICIN
  9. HYDROCHLOROTHIAZIDE [Concomitant]
     Active Substance: HYDROCHLOROTHIAZIDE
  10. METOPROLOL [Concomitant]
     Active Substance: METOPROLOL
  11. VITAMINS [Concomitant]
     Active Substance: VITAMINS
  12. MUPIROCIN [Concomitant]
     Active Substance: MUPIROCIN
  13. NASACORT [Concomitant]
     Active Substance: TRIAMCINOLONE ACETONIDE
  14. POTASSIUM CHLORIDE [Concomitant]
     Active Substance: POTASSIUM CHLORIDE
  15. PROLIA [Concomitant]
     Active Substance: DENOSUMAB
  16. TYLENOL [Concomitant]
     Active Substance: ACETAMINOPHEN
  17. VITAMIN B12 [Concomitant]
     Active Substance: CYANOCOBALAMIN
  18. VITAMIN C [Concomitant]
     Active Substance: ASCORBIC ACID

REACTIONS (2)
  - White blood cell count decreased [None]
  - Pulmonary thrombosis [None]
